FAERS Safety Report 10008985 (Version 1)
Quarter: 2014Q1

REPORT INFORMATION
  Report Type: Spontaneous
  Country: US (occurrence: US)
  Receive Date: 20140313
  Receipt Date: 20140313
  Transmission Date: 20141002
  Serious: No
  Sender: FDA-Public Use
  Company Number: US-INCYTE CORPORATION-2012IN001206

PATIENT
  Age: 52 Year
  Sex: Female

DRUGS (5)
  1. JAKAFI [Suspect]
     Indication: SPLENOMEGALY
     Dosage: 15 MG, BID
     Route: 048
  2. COUMADIN [Concomitant]
     Dosage: 6 MG, QD
  3. NADOLOL [Concomitant]
     Dosage: 120 MG, QD
  4. LEVOTHYROXINE SODIUM [Concomitant]
     Dosage: 175 MCG, QD
  5. ZOLOFT [Concomitant]
     Dosage: 200 MG, QD

REACTIONS (3)
  - Arthralgia [Not Recovered/Not Resolved]
  - Hypoaesthesia [Not Recovered/Not Resolved]
  - Paraesthesia [Not Recovered/Not Resolved]
